FAERS Safety Report 5115898-1 (Version None)
Quarter: 2006Q3

REPORT INFORMATION
  Report Type: 
  Country: None (occurrence: None)
  Receive Date: 20060927
  Receipt Date: 20060914
  Transmission Date: 20061208
  Serious: Yes (Other)
  Sender: FDA-Public Use
  Company Number: PHBS2006US14545

PATIENT
  Age: 37 Year
  Sex: Female

DRUGS (4)
  1. CARBAMAZEPINE [Suspect]
     Indication: CONVULSION
     Dosage: 200 MG, TID
     Route: 065
  2. GABAPENTIN [Concomitant]
     Indication: CONVULSION
     Dosage: 250 MG, BID
     Route: 065
  3. PHENYTOIN [Concomitant]
     Indication: CONVULSION
     Dosage: 300 MG/DAY
     Route: 065
  4. TOPIRAMATE [Concomitant]
     Dosage: 250 MG, BID
     Route: 065

REACTIONS (7)
  - CONVULSION [None]
  - DEPRESSION [None]
  - HEADACHE [None]
  - INSOMNIA [None]
  - MOOD SWINGS [None]
  - SUICIDE ATTEMPT [None]
  - TREATMENT NONCOMPLIANCE [None]
